FAERS Safety Report 6117388-6 (Version None)
Quarter: 2009Q1

REPORT INFORMATION
  Report Type: 
  Country: None (occurrence: None)
  Receive Date: 20090314
  Receipt Date: 20090115
  Transmission Date: 20090719
  Serious: No
  Sender: FDA-Public Use
  Company Number: US-ABBOTT-09P-163-0498277-00

PATIENT
  Sex: Female
  Weight: 61.29 kg

DRUGS (5)
  1. HUMIRA [Suspect]
     Indication: RHEUMATOID ARTHRITIS
     Route: 058
     Dates: start: 20060101
  2. RELAFEN [Concomitant]
     Indication: RHEUMATOID ARTHRITIS
  3. DIOVAN [Concomitant]
     Indication: HYPERTENSION
  4. CENTRUM SILVER [Concomitant]
     Indication: ROUTINE HEALTH MAINTENANCE
     Route: 048
  5. CALTRATE PLUS 600 VITAMIN D [Concomitant]
     Indication: ROUTINE HEALTH MAINTENANCE

REACTIONS (2)
  - IMPAIRED HEALING [None]
  - SKIN LESION [None]
